FAERS Safety Report 4336418-5 (Version None)
Quarter: 2004Q2

REPORT INFORMATION
  Report Type: 
  Country: None (occurrence: None)
  Receive Date: 20040407
  Receipt Date: 20040326
  Transmission Date: 20050107
  Serious: Yes (Life-Threatening, Hospitalization, Other)
  Sender: FDA-Public Use
  Company Number: US-JNJFOC-20031003293

PATIENT
  Age: 63 Year
  Sex: Female
  Weight: 56.6996 kg

DRUGS (24)
  1. REMICADE [Suspect]
     Indication: RHEUMATOID ARTHRITIS
     Dosage: 200 MG, INTRAVENOUS
     Route: 042
     Dates: start: 20000901, end: 20000901
  2. REMICADE [Suspect]
     Dosage: 200 MG, INTRAVENOUS
     Route: 042
  3. REMICADE [Suspect]
     Dosage: 200 MG, INTRAVENOUS
     Route: 042
     Dates: start: 20030612, end: 20030612
  4. REMICADE [Suspect]
     Dosage: 200 MG, INTRAVENOUS
     Route: 042
     Dates: start: 20031002, end: 20031002
  5. REMICADE [Suspect]
     Dosage: 200 MG, INTRAVENOUS
     Route: 042
     Dates: start: 20020829, end: 20020829
  6. REMICADE [Suspect]
     Dosage: 200 MG, INTRAVENOUS
     Route: 042
     Dates: start: 20020912, end: 20020912
  7. REMICADE [Suspect]
     Dosage: 200 MG, INTRAVENOUS
     Route: 042
     Dates: start: 20021010, end: 20021010
  8. REMICADE [Suspect]
     Dosage: 200 MG, INTRAVENOUS
     Route: 042
     Dates: start: 20021203, end: 20021203
  9. REMICADE [Suspect]
     Dosage: 200 MG, INTRAVENOUS
     Route: 042
     Dates: start: 20030626, end: 20030626
  10. REMICADE [Suspect]
     Dosage: 200 MG, INTRAVENOUS
     Route: 042
     Dates: start: 20030724, end: 20030724
  11. REMICADE [Suspect]
     Dosage: 200 MG, INTRAVENOUS
     Route: 042
     Dates: start: 20031004, end: 20031004
  12. PROZAC [Concomitant]
  13. FOLIC ACID [Concomitant]
  14. PREM-PRO (PREMARIN PLUS) [Concomitant]
  15. FIOROCET (AXOTAL (OLD FORM) [Concomitant]
  16. FLONASE [Concomitant]
  17. FOSAMAX (ALDENDRONATE SODIUM) [Concomitant]
  18. AMBIEN [Concomitant]
  19. AMBIEN [Concomitant]
  20. ENBREL [Concomitant]
  21. MULTIVITAMIN [Concomitant]
  22. VITAMIN C (ASCORBIC ACID) [Concomitant]
  23. SELENIUM (SELENIUM) [Concomitant]
  24. ENTEX CAP [Concomitant]

REACTIONS (5)
  - DIFFUSE LARGE B-CELL LYMPHOMA [None]
  - HYPOKALAEMIA [None]
  - LYMPHADENOPATHY [None]
  - MALIGNANT PLEURAL EFFUSION [None]
  - NECK PAIN [None]
